FAERS Safety Report 12231274 (Version 1)
Quarter: 2016Q2

REPORT INFORMATION
  Report Type: Spontaneous
  Country: FR (occurrence: FR)
  Receive Date: 20160401
  Receipt Date: 20160401
  Transmission Date: 20160815
  Serious: Yes (Hospitalization)
  Sender: FDA-Public Use
  Company Number: FR-PFIZER INC-2016170346

PATIENT
  Age: 57 Year
  Sex: Female

DRUGS (6)
  1. AUGMENTIN [Concomitant]
     Active Substance: AMOXICILLIN\CLAVULANATE POTASSIUM
     Dosage: UNK
     Dates: start: 20150528, end: 20150606
  2. ZAVEDOS [Suspect]
     Active Substance: IDARUBICIN
     Indication: LEUKAEMIA
     Dosage: 16.5 MG, DAILY
     Route: 042
     Dates: start: 20150529, end: 20150602
  3. FORTUM /00559701/ [Concomitant]
     Active Substance: CEFTAZIDIME
     Dosage: UNK
     Dates: start: 20150606, end: 20150614
  4. ARACYTINE [Suspect]
     Active Substance: CYTARABINE
     Indication: LEUKAEMIA
     Dosage: 362 MG, DAILY
     Route: 042
     Dates: start: 20150529, end: 20150604
  5. VANCOMYCINE [Concomitant]
     Active Substance: VANCOMYCIN
     Dosage: UNK
     Dates: start: 20150606, end: 20150614
  6. TAZOCILLINE [Concomitant]
     Active Substance: PIPERACILLIN SODIUM\TAZOBACTAM SODIUM

REACTIONS (2)
  - Polyneuropathy [Recovering/Resolving]
  - Cerebral haemorrhage [Recovering/Resolving]

NARRATIVE: CASE EVENT DATE: 20150618
